FAERS Safety Report 22602522 (Version 1)
Quarter: 2023Q2

REPORT INFORMATION
  Report Type: Spontaneous
  Country: US (occurrence: US)
  Receive Date: 20230614
  Receipt Date: 20230614
  Transmission Date: 20230721
  Serious: No
  Sender: FDA-Public Use
  Company Number: US-REVANCE THERAPEUTICS INC.-US-REV-2023-000146

PATIENT

DRUGS (1)
  1. DAXIBOTULINUMTOXIN A-LANM [Suspect]
     Active Substance: DAXIBOTULINUMTOXIN A-LANM
     Indication: Product used for unknown indication
     Dosage: 60 UNITS IN THE GLABELLA AND LATERAL CANTHAL LINES, 4 UNTS IN THE LATERAL CANTHAL AND 2 AROUND THE E
     Dates: start: 20230323

REACTIONS (5)
  - Eyelid ptosis [Not Recovered/Not Resolved]
  - Ocular discomfort [Unknown]
  - Photophobia [Unknown]
  - Mydriasis [Not Recovered/Not Resolved]
  - Off label use [Unknown]

NARRATIVE: CASE EVENT DATE: 20230101
